FAERS Safety Report 5927320-3 (Version None)
Quarter: 2008Q4

REPORT INFORMATION
  Report Type: 
  Country: None (occurrence: None)
  Receive Date: 20081017
  Receipt Date: 20081002
  Transmission Date: 20090506
  Serious: Yes (Other)
  Sender: FDA-Public Use
  Company Number: FR-1167463

PATIENT
  Age: 76 Year
  Sex: Male

DRUGS (2)
  1. AZOPT [Suspect]
     Dosage: OPHTHALMIC
     Route: 047
  2. XALATAN [Concomitant]

REACTIONS (1)
  - DEAFNESS [None]
